FAERS Safety Report 6648816-5 (Version None)
Quarter: 2010Q1

REPORT INFORMATION
  Report Type: 
  Country: None (occurrence: None)
  Receive Date: 20100324
  Receipt Date: 20100312
  Transmission Date: 20100710
  Serious: Yes (Other)
  Sender: FDA-Public Use
  Company Number: PHHY2010JP12914

PATIENT
  Age: 56 Year
  Sex: Male

DRUGS (1)
  1. NEORAL [Suspect]
     Indication: RHEUMATOID ARTHRITIS
     Dosage: UNK
     Route: 048
     Dates: start: 20090401

REACTIONS (9)
  - ANAEMIA [None]
  - ARTHRALGIA [None]
  - INTERSTITIAL LUNG DISEASE [None]
  - KNEE DEFORMITY [None]
  - LEUKOPENIA [None]
  - PYREXIA [None]
  - RHEUMATOID ARTHRITIS [None]
  - THROMBOCYTOPENIA [None]
  - ZYGOMYCOSIS [None]
